FAERS Safety Report 19003005 (Version 1)
Quarter: 2021Q1

REPORT INFORMATION
  Report Type: Report from Study
  Country: US (occurrence: US)
  Receive Date: 20210312
  Receipt Date: 20210312
  Transmission Date: 20210420
  Serious: No
  Sender: FDA-Public Use
  Company Number: US-ORGANON-2101USA007553

PATIENT
  Age: 26 Year
  Sex: Female
  Weight: 53.52 kg

DRUGS (1)
  1. IMPLANON [Suspect]
     Active Substance: ETONOGESTREL
     Indication: CONTRACEPTION
     Dosage: 1 IMPLANT, 68 MILLIGRAM; INSERTION SITE: LEFT ARM
     Route: 059
     Dates: start: 201906

REACTIONS (2)
  - Weight increased [Not Recovered/Not Resolved]
  - Complication associated with device [Not Recovered/Not Resolved]

NARRATIVE: CASE EVENT DATE: 201906
